FAERS Safety Report 14757375 (Version 1)
Quarter: 2018Q2

REPORT INFORMATION
  Report Type: Spontaneous
  Country: US (occurrence: US)
  Receive Date: 20180409
  Receipt Date: 20180409
  Transmission Date: 20180711
  Serious: Yes (Life-Threatening, Disabling)
  Sender: FDA-Public Use
  Company Number: None

PATIENT
  Age: 36 Year
  Weight: 99 kg

DRUGS (6)
  1. FISH OIL [Concomitant]
     Active Substance: FISH OIL
  2. FINASTERIDE. [Suspect]
     Active Substance: FINASTERIDE
     Indication: ACNE
     Dosage: 1 CAPSULE(S); EVERY THREE DAYS; ORAL?
     Route: 048
     Dates: start: 20161001, end: 20170101
  3. CREATINE [Concomitant]
     Active Substance: CREATINE
  4. FINASTERIDE. [Suspect]
     Active Substance: FINASTERIDE
     Indication: ALOPECIA
     Dosage: 1 CAPSULE(S); EVERY THREE DAYS; ORAL?
     Route: 048
     Dates: start: 20161001, end: 20170101
  5. WHEY PROTEIN [Concomitant]
     Active Substance: WHEY
  6. VITAMIN D [Concomitant]
     Active Substance: CHOLECALCIFEROL

REACTIONS (2)
  - Impaired quality of life [None]
  - Completed suicide [None]

NARRATIVE: CASE EVENT DATE: 20170101
